FAERS Safety Report 6304825-7 (Version None)
Quarter: 2009Q3

REPORT INFORMATION
  Report Type: 
  Country: None (occurrence: None)
  Receive Date: 20090811
  Receipt Date: 20090330
  Transmission Date: 20100115
  Serious: Yes (Hospitalization, Other)
  Sender: FDA-Public Use
  Company Number: PHHO2009FR01242

PATIENT
  Sex: Male

DRUGS (10)
  1. RAD 666 RAD+TAB [Suspect]
     Indication: KAPOSI'S SARCOMA
     Dosage: 10 MG, QD
     Route: 048
     Dates: start: 20080720, end: 20081117
  2. INSULATARD [Concomitant]
  3. GLUCOPHAGE [Concomitant]
  4. GLUCOR [Concomitant]
  5. DETENSIEL [Concomitant]
  6. FELODIPINE [Concomitant]
  7. RENITEC [Concomitant]
  8. EURELIX [Concomitant]
  9. ELISOR [Concomitant]
  10. FOLIC ACID [Suspect]

REACTIONS (7)
  - ANAEMIA [None]
  - BLOOD GLUCOSE INCREASED [None]
  - C-REACTIVE PROTEIN INCREASED [None]
  - INFLAMMATION [None]
  - KAPOSI'S SARCOMA [None]
  - MICROCYTIC ANAEMIA [None]
  - NODULE [None]
